FAERS Safety Report 10809923 (Version 1)
Quarter: 2015Q1

REPORT INFORMATION
  Report Type: Report from Study
  Country: US (occurrence: US)
  Receive Date: 20150217
  Receipt Date: 20150217
  Transmission Date: 20150721
  Serious: No
  Sender: FDA-Public Use
  Company Number: US-ABBVIE-14K-163-1267858-00

PATIENT
  Age: 50 Year
  Sex: Female

DRUGS (9)
  1. CIPROFLOXACIN. [Concomitant]
     Active Substance: CIPROFLOXACIN
     Indication: CROHN^S DISEASE
  2. FERROUS SULFATE [Concomitant]
     Active Substance: FERROUS SULFATE\FERROUS SULFATE, DRIED
     Indication: ANAEMIA
  3. AMLODIPINE [Concomitant]
     Active Substance: AMLODIPINE BESYLATE
     Indication: HYPERTENSION
  4. TRIAMTERENE AND HYDROCHLOROTHIAZIDE [Concomitant]
     Active Substance: HYDROCHLOROTHIAZIDE\TRIAMTERENE
     Indication: HYPERTENSION
     Dosage: 37.5/25 MG
  5. HUMIRA [Suspect]
     Active Substance: ADALIMUMAB
     Indication: CROHN^S DISEASE
     Dosage: DAY ONE
     Dates: start: 20140716, end: 20140716
  6. HUMIRA [Suspect]
     Active Substance: ADALIMUMAB
  7. BUDESONIDE. [Concomitant]
     Active Substance: BUDESONIDE
     Indication: CROHN^S DISEASE
  8. METRONIDAZOLE. [Concomitant]
     Active Substance: METRONIDAZOLE
     Indication: CROHN^S DISEASE
  9. LISINOPRIL. [Concomitant]
     Active Substance: LISINOPRIL
     Indication: HYPERTENSION

REACTIONS (1)
  - Weight decreased [Not Recovered/Not Resolved]

NARRATIVE: CASE EVENT DATE: 20140716
